FAERS Safety Report 10068594 (Version 3)
Quarter: 2014Q2

REPORT INFORMATION
  Report Type: Spontaneous
  Country: US (occurrence: US)
  Receive Date: 20140409
  Receipt Date: 20140428
  Transmission Date: 20141212
  Serious: Yes (Hospitalization)
  Sender: FDA-Public Use
  Company Number: US-GLAXOSMITHKLINE-A1067507A

PATIENT
  Age: 62 Year
  Sex: Female

DRUGS (6)
  1. LAMICTAL [Suspect]
     Indication: EPILEPSY
     Route: 048
  2. LAMICTAL [Suspect]
     Indication: EPILEPSY
     Dosage: 200MG TWICE PER DAY
     Route: 048
     Dates: start: 2013
  3. PRIMIDONE [Concomitant]
  4. NADOLOL [Concomitant]
  5. CELEXA [Concomitant]
  6. GABAPENTIN [Concomitant]

REACTIONS (3)
  - Hip arthroplasty [Unknown]
  - Essential tremor [Not Recovered/Not Resolved]
  - Drug ineffective [Unknown]
